FAERS Safety Report 9816347 (Version 2)
Quarter: 2014Q1

REPORT INFORMATION
  Report Type: Report from Study
  Country: AR (occurrence: AR)
  Receive Date: 20140114
  Receipt Date: 20140114
  Transmission Date: 20141002
  Serious: Yes (Other)
  Sender: FDA-Public Use
  Company Number: PHHY2014AR001850

PATIENT
  Sex: Female

DRUGS (2)
  1. DIOVAN [Suspect]
     Indication: HYPERTENSION
     Dosage: 320 MG, DAILY
     Route: 048
     Dates: start: 201309
  2. DIOVAN [Suspect]
     Dosage: 0.5 DF, UNK

REACTIONS (3)
  - Mitral valve calcification [Unknown]
  - Somnolence [Recovering/Resolving]
  - Wrong technique in drug usage process [Unknown]
